FAERS Safety Report 8586354-3 (Version None)
Quarter: 2012Q3

REPORT INFORMATION
  Report Type: 
  Country: None (occurrence: None)
  Receive Date: 20120810
  Receipt Date: 20120803
  Transmission Date: 20120928
  Serious: Yes (Other)
  Sender: FDA-Public Use
  Company Number: JP-VERTEX PHARMACEUTICALS INC.-AE-2012-009776

PATIENT
  Age: 46 Year
  Sex: Female

DRUGS (11)
  1. TELAVIC [Suspect]
     Indication: HEPATITIS C
     Route: 048
     Dates: start: 20120514, end: 20120709
  2. RIBAVIRIN [Concomitant]
     Route: 048
  3. ALLEGRA [Concomitant]
     Dates: start: 20120518
  4. ALLOPURINOL [Concomitant]
     Dates: start: 20120611
  5. PEGASYS [Concomitant]
     Indication: HEPATITIS C
     Route: 058
     Dates: start: 20120514
  6. RIBAVIRIN [Concomitant]
     Dates: end: 20120709
  7. LANSOPRAZOLE [Concomitant]
     Dates: start: 20120514, end: 20120709
  8. RIBAVIRIN [Concomitant]
     Indication: HEPATITIS C
     Route: 048
     Dates: start: 20120514
  9. MYSER [Concomitant]
     Dates: start: 20120525
  10. LANSOPRAZOLE [Concomitant]
     Route: 048
     Dates: start: 20120514, end: 20120709
  11. ALLOPURINOL [Concomitant]
     Route: 048
     Dates: start: 20120514, end: 20120709

REACTIONS (2)
  - PANCREATITIS ACUTE [None]
  - MATERNAL EXPOSURE DURING PREGNANCY [None]
